FAERS Safety Report 4785321-5 (Version None)
Quarter: 2005Q3

REPORT INFORMATION
  Report Type: 
  Country: None (occurrence: None)
  Receive Date: 20050914
  Receipt Date: 20050706
  Transmission Date: 20060218
  Serious: Yes (Other)
  Sender: FDA-Public Use
  Company Number: 163-20785-05070076 (0)

PATIENT
  Sex: 0

DRUGS (1)
  1. THALOMID [Suspect]
     Indication: NON-HODGKIN'S LYMPHOMA
     Dosage: 200MG FOR 1-2 WEEKS, TITRATE UPWARD BY 100MG EVERY 1-2 WEEKS UNTIL 800MG/DAY, QHS, ORAL
     Route: 048
     Dates: start: 20031001

REACTIONS (1)
  - LYMPHOPENIA [None]
